FAERS Safety Report 8935396 (Version 1)
Quarter: 2012Q4

REPORT INFORMATION
  Report Type: Spontaneous
  Country: DK (occurrence: None)
  Receive Date: 20121119
  Receipt Date: 20121119
  Transmission Date: 20130627
  Serious: Yes (Other)
  Sender: FDA-Public Use
  Company Number: 2012MA013444

PATIENT
  Sex: Male

DRUGS (1)
  1. LOSARTAN POTASSIUM [Suspect]

REACTIONS (4)
  - Dizziness [None]
  - Syncope [None]
  - Feeling abnormal [None]
  - Dizziness [None]
